FAERS Safety Report 5080502-8 (Version None)
Quarter: 2006Q3

REPORT INFORMATION
  Report Type: 
  Country: None (occurrence: None)
  Receive Date: 20060720
  Receipt Date: 20051116
  Transmission Date: 20061208
  Serious: Yes (Other)
  Sender: FDA-Public Use
  Company Number: 2005143977

PATIENT
  Age: 62 Year
  Sex: Female
  Weight: 107.9561 kg

DRUGS (4)
  1. CELEBREX [Suspect]
     Indication: ARTHRITIS
     Dosage: 400 MG (200 MG,2 IN 1 D),ORAL
     Route: 048
  2. ASPIRIN [Suspect]
     Indication: ANTICOAGULANT THERAPY
  3. ALL OTHER THERAPEUTIC PRODUCTS (ALL OTHER THERAPEUTIC PRODUCTS) [Concomitant]
  4. LIPITOR [Concomitant]

REACTIONS (5)
  - CEREBROVASCULAR ACCIDENT [None]
  - DRUG INEFFECTIVE [None]
  - PAIN [None]
  - UMBILICAL HERNIA [None]
  - VISUAL ACUITY REDUCED [None]
